FAERS Safety Report 8105012-2 (Version None)
Quarter: 2012Q1

REPORT INFORMATION
  Report Type: 
  Country: None (occurrence: None)
  Receive Date: 20120201
  Receipt Date: 20120124
  Transmission Date: 20120608
  Serious: Yes (Hospitalization)
  Sender: FDA-Public Use
  Company Number: FR-GLAXOSMITHKLINE-B0777070A

PATIENT
  Sex: Male

DRUGS (12)
  1. COUMADIN [Suspect]
     Indication: DEEP VEIN THROMBOSIS
     Dosage: 2MG PER DAY
     Route: 048
     Dates: start: 20110817, end: 20110831
  2. MYSOLINE [Concomitant]
     Dosage: .5TAB PER DAY
     Route: 048
  3. ZOLOFT [Concomitant]
     Dosage: 50MG PER DAY
     Route: 048
  4. LASIX [Concomitant]
     Dosage: 40MG PER DAY
     Route: 048
  5. MEMANTINE HYDROCHLORIDE [Concomitant]
     Dosage: 10MG TWICE PER DAY
     Route: 048
  6. EXELON [Concomitant]
     Dosage: 4.5MG TWICE PER DAY
     Route: 048
  7. ZOLPIDEM [Concomitant]
     Dosage: 10MG PER DAY
     Route: 048
  8. PERMIXON [Concomitant]
     Dosage: 160MG TWICE PER DAY
     Route: 048
  9. ARIXTRA [Suspect]
     Indication: DEEP VEIN THROMBOSIS
     Dosage: 7.5MG PER DAY
     Route: 058
     Dates: start: 20110817, end: 20110909
  10. ASPIRIN [Suspect]
     Dosage: 75MG PER DAY
     Route: 048
     Dates: start: 20110827, end: 20110831
  11. POTASSIUM CHLORIDE [Concomitant]
     Dosage: 600MG PER DAY
     Route: 048
  12. TAMSULOSIN HCL [Concomitant]
     Dosage: .4MG TWICE PER DAY
     Route: 048

REACTIONS (1)
  - SUBDURAL HAEMATOMA [None]
